FAERS Safety Report 18386854 (Version 1)
Quarter: 2020Q4

REPORT INFORMATION
  Report Type: Report from Study
  Country: IT (occurrence: IT)
  Receive Date: 20201015
  Receipt Date: 20201015
  Transmission Date: 20210114
  Serious: Yes (Hospitalization)
  Sender: FDA-Public Use
  Company Number: IT-TEVA-2020-IT-1837741

PATIENT
  Age: 79 Year
  Sex: Male

DRUGS (12)
  1. CLENIL [Concomitant]
     Active Substance: BECLOMETHASONE DIPROPIONATE
  2. TORVAST [Concomitant]
     Active Substance: ATORVASTATIN
  3. CARDIOASPIRIN [Suspect]
     Active Substance: ASPIRIN
     Dates: start: 20200101, end: 20200623
  4. METHYLPREDNISOLONE. [Concomitant]
     Active Substance: METHYLPREDNISOLONE
  5. NORVASC [Concomitant]
     Active Substance: AMLODIPINE BESYLATE
     Dosage: 10MG
  6. METHYLPREDNISOLONE. [Concomitant]
     Active Substance: METHYLPREDNISOLONE
     Dosage: 16MG
  7. LYRICA [Concomitant]
     Active Substance: PREGABALIN
     Dosage: 75MG
  8. RAMIPRIL. [Concomitant]
     Active Substance: RAMIPRIL
     Dosage: 5 MG
  9. OLANZAPINE. [Concomitant]
     Active Substance: OLANZAPINE
     Dosage: 2.5MG
  10. BRONCOVALEAS [Concomitant]
     Active Substance: ALBUTEROL
  11. CLOPIDOGREL [Suspect]
     Active Substance: CLOPIDOGREL BISULFATE
     Dates: start: 20200101, end: 20200623
  12. SERENASE [Concomitant]

REACTIONS (1)
  - Rectal haemorrhage [Not Recovered/Not Resolved]

NARRATIVE: CASE EVENT DATE: 20200623
